FAERS Safety Report 6296564-6 (Version None)
Quarter: 2009Q3

REPORT INFORMATION
  Report Type: 
  Country: None (occurrence: None)
  Receive Date: 20090804
  Receipt Date: 20090723
  Transmission Date: 20100115
  Serious: Yes (Other)
  Sender: FDA-Public Use
  Company Number: GB-PFIZER INC-2009245239

PATIENT

DRUGS (2)
  1. PHENYTOIN SODIUM CAP [Suspect]
     Indication: CONVULSION
     Dosage: 500 MG, 1X/DAY
     Route: 048
  2. PHENYTOIN SODIUM CAP [Suspect]
     Dosage: UNK

REACTIONS (1)
  - PANCREATITIS [None]
